FAERS Safety Report 13949161 (Version 27)
Quarter: 2021Q3

REPORT INFORMATION
  Report Type: Spontaneous
  Country: BR (occurrence: BR)
  Receive Date: 20170908
  Receipt Date: 20210818
  Transmission Date: 20211014
  Serious: Yes (Other)
  Sender: FDA-Public Use
  Company Number: BR-GLAXOSMITHKLINE-BR2016GSK177634

PATIENT
  Age: 50 Year
  Sex: Female
  Weight: 95 kg

DRUGS (15)
  1. BENLYSTA [Suspect]
     Active Substance: BELIMUMAB
     Indication: SYSTEMIC LUPUS ERYTHEMATOSUS
     Dosage: 840 MG, Z (120MG 7 TIMES EVERY MONTH.
     Route: 042
     Dates: start: 20161128
  2. TROK [Suspect]
     Active Substance: BETAMETHASONE DIPROPIONATE\KETOCONAZOLE
     Indication: PRODUCT USED FOR UNKNOWN INDICATION
     Dosage: UNK
  3. AZATHIOPRINE. [Concomitant]
     Active Substance: AZATHIOPRINE
     Indication: SYSTEMIC LUPUS ERYTHEMATOSUS
     Dosage: UNK
     Dates: start: 2010
  4. COVID?19 VACCINE UNKNOWN [Concomitant]
     Indication: PRODUCT USED FOR UNKNOWN INDICATION
     Dosage: UNK
     Dates: start: 202106
  5. PREDNISONE. [Suspect]
     Active Substance: PREDNISONE
     Dosage: UNK HALF A TABLET FOR ANOTHER 3 DAYS
  6. DECORTIN [Concomitant]
     Active Substance: PREDNISONE
     Indication: PRODUCT USED FOR UNKNOWN INDICATION
     Dosage: 20 MG
  7. DIPYRONE [Concomitant]
     Active Substance: DIPYRONE
     Indication: PRODUCT USED FOR UNKNOWN INDICATION
     Dosage: UNK
  8. HYDROXYCHLOROQUINE [Concomitant]
     Active Substance: HYDROXYCHLOROQUINE
     Indication: SYSTEMIC LUPUS ERYTHEMATOSUS
     Dosage: UNK
     Dates: start: 2010
  9. PREDNISONE. [Suspect]
     Active Substance: PREDNISONE
     Indication: SYSTEMIC LUPUS ERYTHEMATOSUS
     Dosage: 20 MG, 1D
     Dates: start: 2010
  10. AZATHIOPRINE. [Concomitant]
     Active Substance: AZATHIOPRINE
     Dosage: 1 DF(TABLET), QD
     Dates: start: 20170109
  11. CLAVULIN [Suspect]
     Active Substance: AMOXICILLIN\CLAVULANATE POTASSIUM
     Indication: PRODUCT USED FOR UNKNOWN INDICATION
     Dosage: UNK
  12. PREDNISONE. [Suspect]
     Active Substance: PREDNISONE
     Dosage: 5 MG, QD
     Dates: start: 20170109
  13. REUQUINOL [Concomitant]
     Active Substance: HYDROXYCHLOROQUINE SULFATE
     Indication: PRODUCT USED FOR UNKNOWN INDICATION
     Dosage: UNK
  14. LABIRIN [Concomitant]
     Active Substance: BETAHISTINE
     Indication: PRODUCT USED FOR UNKNOWN INDICATION
     Dosage: UNK
  15. HYDROXYCHLOROQUINE [Concomitant]
     Active Substance: HYDROXYCHLOROQUINE
     Dosage: 400 MG, UNK

REACTIONS (59)
  - Headache [Recovered/Resolved]
  - Pain [Recovered/Resolved]
  - Bacterial infection [Recovered/Resolved]
  - Emotional disorder [Recovered/Resolved]
  - Pyrexia [Recovered/Resolved]
  - Chest pain [Recovered/Resolved]
  - Pulmonary mass [Unknown]
  - Underdose [Recovered/Resolved]
  - Pneumonia [Recovered/Resolved]
  - Anxiety [Recovered/Resolved]
  - Somnolence [Recovered/Resolved]
  - Peripheral swelling [Recovered/Resolved]
  - Abdominal pain upper [Recovered/Resolved]
  - Back pain [Recovered/Resolved]
  - Arthralgia [Recovered/Resolved]
  - Weight increased [Recovered/Resolved]
  - Weight decreased [Recovered/Resolved]
  - Dysphonia [Recovered/Resolved]
  - Inappropriate schedule of product administration [Not Recovered/Not Resolved]
  - Cholelithiasis [Recovered/Resolved]
  - Pruritus [Recovered/Resolved]
  - Labyrinthitis [Recovered/Resolved]
  - Cough [Recovered/Resolved]
  - Memory impairment [Recovering/Resolving]
  - Death of relative [Unknown]
  - Fatigue [Unknown]
  - Product dose omission issue [Recovered/Resolved]
  - Vomiting [Recovered/Resolved]
  - Influenza [Recovered/Resolved]
  - Catarrh [Recovered/Resolved]
  - Spinal osteoarthritis [Recovered/Resolved]
  - Tremor [Unknown]
  - Wrong technique in product usage process [Unknown]
  - Swelling [Recovered/Resolved]
  - Dizziness [Recovered/Resolved]
  - Back injury [Recovered/Resolved]
  - Increased bronchial secretion [Recovered/Resolved]
  - Insomnia [Recovered/Resolved]
  - Nightmare [Unknown]
  - Blood test abnormal [Unknown]
  - Circumstance or information capable of leading to medication error [Recovered/Resolved]
  - Shock [Recovered/Resolved]
  - Nephrolithiasis [Unknown]
  - Decreased immune responsiveness [Recovered/Resolved]
  - Tachycardia [Recovered/Resolved]
  - Mouth injury [Recovered/Resolved]
  - Renal pain [Unknown]
  - Sensitivity to weather change [Unknown]
  - Productive cough [Recovered/Resolved]
  - Hypersensitivity [Unknown]
  - Blister [Unknown]
  - Diarrhoea [Recovered/Resolved]
  - Swelling face [Recovered/Resolved]
  - Herpes virus infection [Unknown]
  - Skin discolouration [Recovered/Resolved]
  - Retching [Recovered/Resolved]
  - Skin lesion [Recovered/Resolved]
  - Suspected COVID-19 [Unknown]
  - Product distribution issue [Unknown]

NARRATIVE: CASE EVENT DATE: 20170607
